FAERS Safety Report 23340014 (Version 1)
Quarter: 2023Q4

REPORT INFORMATION
  Report Type: Report from Study
  Country: NL (occurrence: NL)
  Receive Date: 20231227
  Receipt Date: 20231227
  Transmission Date: 20240109
  Serious: Yes (Hospitalization)
  Sender: FDA-Public Use
  Company Number: NL-ABBVIE-5555588

PATIENT
  Sex: Male

DRUGS (7)
  1. CARBIDOPA\LEVODOPA [Suspect]
     Active Substance: CARBIDOPA\LEVODOPA
     Indication: Parkinson^s disease
     Dosage: MD 7.5 ML; CD 3.3 ML/H; ED 1.0 ML?REMAINS AT 16 HOURS
     Route: 050
     Dates: start: 20230516, end: 20231102
  2. CARBIDOPA\LEVODOPA [Suspect]
     Active Substance: CARBIDOPA\LEVODOPA
     Route: 050
     Dates: start: 20210705
  3. CARBIDOPA\LEVODOPA [Suspect]
     Active Substance: CARBIDOPA\LEVODOPA
     Dosage: MD 7.5 ML; CD 3.2 ML/H; ED 1.0 ML?REMAINS AT 16 HOURS
     Route: 050
     Dates: start: 20231102
  4. RIVASTIGMINE [Concomitant]
     Active Substance: RIVASTIGMINE
     Indication: Hallucination
  5. MOVICOLON [Concomitant]
     Active Substance: POLYETHYLENE GLYCOL 3350\POTASSIUM CHLORIDE\SODIUM BICARBONATE\SODIUM CHLORIDE
     Indication: Bowel movement irregularity
  6. CARBIDOPA LEVODOPA [Concomitant]
     Active Substance: CARBIDOPA\LEVODOPA
     Indication: Parkinson^s disease
     Dosage: TIME INTERVAL: 0.16666667 DAYS: FORM STRENGTH: 125 MILLIGRAM?FIRST ADMIN DATE- 2 MARCH 2010
     Route: 048
  7. ENTACAPONE [Concomitant]
     Active Substance: ENTACAPONE
     Indication: Parkinson^s disease
     Dosage: STRENGTH: 200 MILLIGRAM?FIRST ADMIN DATE- 2 MARCH 2020
     Route: 048

REACTIONS (1)
  - Cardiac disorder [Not Recovered/Not Resolved]
